FAERS Safety Report 8162209-3 (Version None)
Quarter: 2012Q1

REPORT INFORMATION
  Report Type: 
  Country: None (occurrence: None)
  Receive Date: 20120224
  Receipt Date: 20111230
  Transmission Date: 20120608
  Serious: No
  Sender: FDA-Public Use
  Company Number: US-BRISTOL-MYERS SQUIBB COMPANY-16324378

PATIENT
  Age: 65 Year
  Sex: Female
  Weight: 102 kg

DRUGS (4)
  1. METFORMIN HCL [Suspect]
     Indication: TYPE 2 DIABETES MELLITUS
  2. DIOVAN [Concomitant]
     Indication: HYPERTENSION
  3. GLIPIZIDE [Concomitant]
     Dosage: GLIPIZIDE 1/2 10MG PILL (5MG)
  4. ATENOLOL [Concomitant]

REACTIONS (1)
  - BLOOD GLUCOSE INCREASED [None]
